FAERS Safety Report 25839325 (Version 1)
Quarter: 2025Q3

REPORT INFORMATION
  Report Type: Report from Study
  Country: EU (occurrence: EU)
  Receive Date: 20250924
  Receipt Date: 20250924
  Transmission Date: 20251021
  Serious: Yes (Hospitalization)
  Sender: ALEXION PHARMACEUTICALS
  Company Number: EU-ASTRAZENECA-202509EEA013444DE

PATIENT

DRUGS (1)
  1. SELUMETINIB [Suspect]
     Active Substance: SELUMETINIB
     Indication: Neurofibromatosis
     Route: 065

REACTIONS (3)
  - Mastitis [Unknown]
  - Staphylococcal infection [Unknown]
  - Abscess [Unknown]

NARRATIVE: CASE EVENT DATE: 20250517
